FAERS Safety Report 7619346-9 (Version None)
Quarter: 2011Q3

REPORT INFORMATION
  Report Type: 
  Country: None (occurrence: None)
  Receive Date: 20110719
  Receipt Date: 20110712
  Transmission Date: 20111222
  Serious: No
  Sender: FDA-Public Use
  Company Number: US-B.I. PHARMACEUTICALS,INC./RIDGEFIELD-2011-BP-17562BP

PATIENT
  Sex: Male

DRUGS (7)
  1. QUINAPRIL HCL [Concomitant]
     Indication: CARDIAC DISORDER
     Dosage: 40 MG
     Route: 048
     Dates: start: 19960101
  2. HYDROCHLOROTHIAZIDE [Concomitant]
     Indication: CARDIAC DISORDER
     Dosage: 10 MG
     Route: 048
     Dates: start: 19960101
  3. LIPITOR [Concomitant]
     Indication: BLOOD CHOLESTEROL ABNORMAL
     Dosage: 10 MG
     Route: 048
  4. DIGOXIN [Concomitant]
     Dosage: 0.25 MG
     Route: 048
  5. PRADAXA [Suspect]
     Indication: ATRIAL FIBRILLATION
     Dosage: 300 MG
     Route: 048
     Dates: start: 20110703
  6. LOPRESSOR [Concomitant]
     Indication: CARDIAC DISORDER
     Dosage: 25 MG
     Route: 048
     Dates: start: 19960101
  7. UROXATRAL [Concomitant]
     Indication: PROSTATIC DISORDER
     Dosage: 0.4 MG
     Route: 048
     Dates: start: 20100101

REACTIONS (2)
  - DYSPEPSIA [None]
  - SENSATION OF FOREIGN BODY [None]
